FAERS Safety Report 16241018 (Version 1)
Quarter: 2019Q2

REPORT INFORMATION
  Report Type: Spontaneous
  Country: GB (occurrence: GB)
  Receive Date: 20190425
  Receipt Date: 20190425
  Transmission Date: 20190711
  Serious: Yes (Hospitalization)
  Sender: FDA-Public Use
  Company Number: PHHY2019GB094950

PATIENT
  Age: 2 Year
  Sex: Male
  Weight: 14.5 kg

DRUGS (1)
  1. CEFTRIAXONE. [Suspect]
     Active Substance: CEFTRIAXONE
     Indication: TONSILLITIS
     Dosage: 720 MG, UNK
     Route: 042
     Dates: start: 20190331, end: 20190331

REACTIONS (1)
  - Eye swelling [Recovering/Resolving]

NARRATIVE: CASE EVENT DATE: 20190331
